FAERS Safety Report 7110789-9 (Version None)
Quarter: 2010Q4

REPORT INFORMATION
  Report Type: 
  Country: None (occurrence: None)
  Receive Date: 20101116
  Receipt Date: 20101116
  Transmission Date: 20110411
  Serious: No
  Sender: FDA-Public Use
  Company Number: None

PATIENT
  Age: 41 Year
  Sex: Male
  Weight: 61.2356 kg

DRUGS (1)
  1. PREVACID [Suspect]
     Indication: OESOPHAGITIS
     Dosage: 30 MG ONCE A DAY PO
     Route: 048
     Dates: start: 20101014, end: 20101015

REACTIONS (2)
  - NAUSEA [None]
  - PRODUCT SUBSTITUTION ISSUE [None]
